FAERS Safety Report 17838305 (Version 5)
Quarter: 2021Q3

REPORT INFORMATION
  Report Type: Report from Study
  Country: US (occurrence: US)
  Receive Date: 20200528
  Receipt Date: 20210830
  Transmission Date: 20211014
  Serious: Yes (Other)
  Sender: FDA-Public Use
  Company Number: NVSC2020US145609

PATIENT
  Sex: Female

DRUGS (8)
  1. KISQALI [Suspect]
     Active Substance: RIBOCICLIB
     Dosage: 3 DF, QD (TOTAL OF 600 MG) (FOR 21 DAYS EVERY 28 DAYS)
     Route: 048
     Dates: start: 20210501
  2. FULVESTRANT. [Concomitant]
     Active Substance: FULVESTRANT
     Indication: PRODUCT USED FOR UNKNOWN INDICATION
     Dosage: UNK
     Route: 065
  3. LEVOTHYROXINE SODIUM. [Concomitant]
     Active Substance: LEVOTHYROXINE SODIUM
     Indication: PRODUCT USED FOR UNKNOWN INDICATION
     Dosage: UNK
     Route: 065
  4. KISQALI [Suspect]
     Active Substance: RIBOCICLIB
     Dosage: 3 DF, QD (TOTAL OF 600 MG) (FOR 21 DAYS EVERY 28 DAYS)
     Route: 048
     Dates: start: 20210506
  5. SEROQUEL [Concomitant]
     Active Substance: QUETIAPINE FUMARATE
     Indication: PRODUCT USED FOR UNKNOWN INDICATION
     Dosage: UNK
     Route: 065
  6. CYMBALTA [Concomitant]
     Active Substance: DULOXETINE HYDROCHLORIDE
     Indication: PRODUCT USED FOR UNKNOWN INDICATION
     Dosage: UNK
     Route: 065
  7. GINKGO BILOBA [Concomitant]
     Active Substance: GINKGO
     Indication: PRODUCT USED FOR UNKNOWN INDICATION
     Dosage: UNK
     Route: 065
  8. KISQALI [Suspect]
     Active Substance: RIBOCICLIB
     Indication: BREAST CANCER
     Dosage: 3 DF, QD (TOTAL OF 600 MG) (FOR 21 DAYS EVERY 28 DAYS)
     Route: 048

REACTIONS (14)
  - Insomnia [Unknown]
  - Musculoskeletal discomfort [Unknown]
  - Depression [Recovering/Resolving]
  - Pyrexia [Unknown]
  - Decreased appetite [Unknown]
  - Cough [Unknown]
  - Constipation [Recovering/Resolving]
  - Weight decreased [Unknown]
  - Taste disorder [Unknown]
  - Nausea [Unknown]
  - Epistaxis [Unknown]
  - Neuropathy peripheral [Unknown]
  - Pruritus [Unknown]
  - Fatigue [Not Recovered/Not Resolved]
